FAERS Safety Report 9655027 (Version 2)
Quarter: 2013Q4

REPORT INFORMATION
  Report Type: Spontaneous
  Country: US (occurrence: US)
  Receive Date: 20131029
  Receipt Date: 20131029
  Transmission Date: 20140711
  Serious: No
  Sender: FDA-Public Use
  Company Number: US-PURDUE-USA-2012-0092341

PATIENT
  Sex: Male

DRUGS (6)
  1. OXYCONTIN (NDA 22-272) [Suspect]
     Indication: INTERVERTEBRAL DISC PROTRUSION
     Dosage: 60 MG, QID PRN
     Route: 048
     Dates: start: 2009
  2. OXYCONTIN (NDA 22-272) [Suspect]
     Indication: BACK PAIN
     Dosage: 40 MG, QID PRN
     Route: 048
     Dates: start: 2009
  3. TESTOSTERONE [Concomitant]
     Indication: SUPPLEMENTATION THERAPY
     Dosage: UNK
     Dates: start: 2011
  4. TESTOSTERONE [Concomitant]
     Indication: BLOOD TESTOSTERONE DECREASED
  5. ANDROGEL [Concomitant]
     Indication: PRODUCT USED FOR UNKNOWN INDICATION
     Dosage: UNK
     Dates: start: 2010, end: 2011
  6. OXYCODONE                          /00045603/ [Concomitant]
     Indication: PRODUCT USED FOR UNKNOWN INDICATION
     Dosage: UNK
     Dates: end: 2011

REACTIONS (5)
  - Blood testosterone decreased [Unknown]
  - Night sweats [Unknown]
  - Hyperhidrosis [Not Recovered/Not Resolved]
  - Drug hypersensitivity [Unknown]
  - Visual impairment [Unknown]
